FAERS Safety Report 25108205 (Version 6)
Quarter: 2025Q3

REPORT INFORMATION
  Report Type: Spontaneous
  Country: US (occurrence: US)
  Receive Date: 20250322
  Receipt Date: 20250918
  Transmission Date: 20251021
  Serious: Yes (Other)
  Sender: SANOFI AVENTIS
  Company Number: US-SA-2025SA081934

PATIENT
  Age: 74 Year
  Sex: Female

DRUGS (3)
  1. DUPIXENT [Suspect]
     Active Substance: DUPILUMAB
     Indication: Dermatitis
     Route: 058
     Dates: start: 202502, end: 202502
  2. DUPIXENT [Suspect]
     Active Substance: DUPILUMAB
     Indication: Pruritus
     Dosage: 300 MG, QOW
     Route: 058
     Dates: start: 2025
  3. DUPIXENT [Suspect]
     Active Substance: DUPILUMAB
     Indication: Eczema

REACTIONS (16)
  - Hyperkalaemia [Recovered/Resolved]
  - Thrombosis [Unknown]
  - Liver transplant [Unknown]
  - Hypertension [Unknown]
  - Weight decreased [Unknown]
  - Abdominal pain upper [Recovered/Resolved]
  - Hepatic pain [Unknown]
  - Blood pressure increased [Recovered/Resolved]
  - Oral discomfort [Unknown]
  - Lip swelling [Not Recovered/Not Resolved]
  - Lip pruritus [Unknown]
  - Peripheral swelling [Unknown]
  - Urinary tract infection [Unknown]
  - Oral herpes [Recovering/Resolving]
  - Dry eye [Recovered/Resolved]
  - Product use in unapproved indication [Unknown]

NARRATIVE: CASE EVENT DATE: 20250101
